FAERS Safety Report 25187795 (Version 1)
Quarter: 2025Q2

REPORT INFORMATION
  Report Type: Other
  Country: US (occurrence: US)
  Receive Date: 20250411
  Receipt Date: 20250411
  Transmission Date: 20250717
  Serious: Yes (Death, Other)
  Sender: ALVOGEN
  Company Number: US-ALVOGEN-2025096944

PATIENT
  Age: 45 Year
  Sex: Female

DRUGS (6)
  1. TRAZODONE [Suspect]
     Active Substance: TRAZODONE HYDROCHLORIDE
     Indication: Suicide attempt
     Route: 048
  2. VITAMIN D [Suspect]
     Active Substance: VITAMIN D NOS
     Indication: Suicide attempt
     Route: 048
  3. AMLODIPINE [Suspect]
     Active Substance: AMLODIPINE BESYLATE
     Indication: Suicide attempt
     Route: 048
  4. OLANZAPINE [Suspect]
     Active Substance: OLANZAPINE
     Indication: Suicide attempt
     Route: 048
  5. BENZTROPINE [Suspect]
     Active Substance: BENZTROPINE
     Indication: Suicide attempt
     Route: 048
  6. FLUOXETINE [Suspect]
     Active Substance: FLUOXETINE HYDROCHLORIDE
     Indication: Suicide attempt
     Route: 048

REACTIONS (1)
  - Completed suicide [Fatal]
